FAERS Safety Report 16950127 (Version 8)
Quarter: 2019Q4

REPORT INFORMATION
  Report Type: Spontaneous
  Country: US (occurrence: US)
  Receive Date: 20191023
  Receipt Date: 20191219
  Transmission Date: 20200122
  Serious: No
  Sender: FDA-Public Use
  Company Number: US-BIOGEN-2019BI00799512

PATIENT
  Sex: Female

DRUGS (1)
  1. TYSABRI [Suspect]
     Active Substance: NATALIZUMAB
     Indication: MULTIPLE SCLEROSIS
     Route: 042
     Dates: start: 20180220

REACTIONS (12)
  - Confusional state [Unknown]
  - Inappropriate schedule of product administration [Unknown]
  - Fear [Unknown]
  - Crying [Unknown]
  - Frustration tolerance decreased [Unknown]
  - Emotional distress [Unknown]
  - Pain [Not Recovered/Not Resolved]
  - Stress [Not Recovered/Not Resolved]
  - Anxiety [Unknown]
  - Nervousness [Unknown]
  - Anger [Unknown]
  - Mental disorder [Unknown]
